FAERS Safety Report 7474217-6 (Version None)
Quarter: 2011Q2

REPORT INFORMATION
  Report Type: 
  Country: None (occurrence: None)
  Receive Date: 20110511
  Receipt Date: 20110506
  Transmission Date: 20111010
  Serious: Yes (Hospitalization)
  Sender: FDA-Public Use
  Company Number: US-GENZYME-CAMP-1001608

PATIENT
  Sex: Male
  Weight: 2.948 kg

DRUGS (3)
  1. GENTAMICIN [Concomitant]
     Indication: PNEUMONIA
     Dosage: UNK UNK, UNK
     Route: 065
     Dates: start: 20110414, end: 20110421
  2. CAMPATH [Suspect]
     Indication: MULTIPLE SCLEROSIS
     Dosage: UNK UNK, UNK
     Route: 050
  3. AMPICILLIN SODIUM [Concomitant]
     Indication: PNEUMONIA
     Dosage: UNK UNK, UNK
     Route: 065
     Dates: start: 20110411, end: 20110414

REACTIONS (10)
  - NEONATAL RESPIRATORY DISTRESS SYNDROME [None]
  - CONGENITAL PNEUMONIA [None]
  - BLOOD CREATINE INCREASED [None]
  - ANAEMIA [None]
  - BLOOD BILIRUBIN INCREASED [None]
  - BLOOD UREA INCREASED [None]
  - POST PROCEDURAL CELLULITIS [None]
  - MATERNAL DRUGS AFFECTING FOETUS [None]
  - HYPERBILIRUBINAEMIA [None]
  - CELLULITIS OF MALE EXTERNAL GENITAL ORGAN [None]
